FAERS Safety Report 8281990-6 (Version None)
Quarter: 2012Q2

REPORT INFORMATION
  Report Type: 
  Country: None (occurrence: None)
  Receive Date: 20120413
  Receipt Date: 20120405
  Transmission Date: 20120825
  Serious: Yes (Hospitalization)
  Sender: FDA-Public Use
  Company Number: 2012SP001039

PATIENT
  Age: 82 Year
  Sex: Female

DRUGS (3)
  1. LATUDA [Suspect]
     Indication: BIPOLAR DISORDER
     Route: 048
     Dates: start: 20120326, end: 20120402
  2. ZYPREXA [Concomitant]
     Indication: BIPOLAR DISORDER
     Dates: start: 20020101, end: 20120301
  3. CELEXA /01400501/ [Concomitant]
     Indication: DEPRESSION

REACTIONS (6)
  - ISCHAEMIC HEPATITIS [None]
  - FALL [None]
  - HALLUCINATION, AUDITORY [None]
  - CONTUSION [None]
  - BALANCE DISORDER [None]
  - AMMONIA INCREASED [None]
